FAERS Safety Report 8041661-8 (Version None)
Quarter: 2012Q1

REPORT INFORMATION
  Report Type: 
  Country: None (occurrence: None)
  Receive Date: 20120112
  Receipt Date: 20120103
  Transmission Date: 20120608
  Serious: Yes (Hospitalization)
  Sender: FDA-Public Use
  Company Number: GB-ELI_LILLY_AND_COMPANY-GB201110003838

PATIENT
  Sex: Female

DRUGS (5)
  1. QUETIAPINE [Concomitant]
     Dosage: UNK, UNKNOWN
  2. DULOXETINE HYDROCHLORIDE [Suspect]
     Indication: DEPRESSION
     Dosage: 60 MG, QD
     Route: 048
     Dates: start: 20110906, end: 20110915
  3. CITALOPRAM [Concomitant]
     Dosage: 20 MG, UNK
  4. QUETIAPINE [Concomitant]
     Dosage: 600 MG, QD
  5. RISPERIDONE [Concomitant]
     Dosage: UNK, UNKNOWN

REACTIONS (2)
  - PARASOMNIA [None]
  - PSYCHOTIC DISORDER [None]
